FAERS Safety Report 4503197-8 (Version None)
Quarter: 2004Q4

REPORT INFORMATION
  Report Type: 
  Country: None (occurrence: None)
  Receive Date: 20041112
  Receipt Date: 20041102
  Transmission Date: 20050328
  Serious: Yes (Disabling, Other)
  Sender: FDA-Public Use
  Company Number: 2004230939DE

PATIENT
  Age: 49 Year
  Sex: Female
  Weight: 75 kg

DRUGS (2)
  1. DOSTINEX [Suspect]
     Indication: ACROMEGALY
     Dosage: 2X 1TABLET, TWICE A WEEK, ORAL; 2X0.25MG/WEEK, ORAL
     Route: 048
  2. LEVOTHYROXINE SODIUM [Concomitant]

REACTIONS (3)
  - INSULIN-LIKE GROWTH FACTOR DECREASED [None]
  - NAUSEA [None]
  - OVARIAN CANCER [None]
